FAERS Safety Report 4374555-X (Version None)
Quarter: 2004Q2

REPORT INFORMATION
  Report Type: 
  Country: None (occurrence: None)
  Receive Date: 20040602
  Receipt Date: 20040213
  Transmission Date: 20050107
  Serious: No
  Sender: FDA-Public Use
  Company Number: 200412628BWH

PATIENT
  Age: 43 Year
  Sex: Male

DRUGS (4)
  1. LEVITRA [Suspect]
     Indication: LIBIDO INCREASED
     Dosage: 40 MG, TOTAL DAILY, ORAL
     Route: 048
  2. VALIUM [Concomitant]
  3. LIPITOR [Concomitant]
  4. ADDERALL 10 [Concomitant]

REACTIONS (3)
  - ERECTION INCREASED [None]
  - FLUSHING [None]
  - NASAL CONGESTION [None]
